FAERS Safety Report 7577875-0 (Version None)
Quarter: 2011Q2

REPORT INFORMATION
  Report Type: 
  Country: None (occurrence: None)
  Receive Date: 20110628
  Receipt Date: 20110617
  Transmission Date: 20111010
  Serious: No
  Sender: FDA-Public Use
  Company Number: PHHY2011US52103

PATIENT
  Sex: Female

DRUGS (5)
  1. GILENYA [Suspect]
     Indication: RELAPSING-REMITTING MULTIPLE SCLEROSIS
     Dosage: 0.5 MG, QD
     Route: 048
     Dates: start: 20070817, end: 20110614
  2. TRAZODONE HCL [Concomitant]
     Indication: INSOMNIA
     Dosage: 100 MG, QHS
  3. LEXAPRO [Concomitant]
     Dosage: 10 MG, QHS
     Route: 048
  4. CLARITIN [Concomitant]
     Dosage: UNK UKN, QD
     Route: 048
  5. VITAMIN D + CALCIUM [Concomitant]
     Indication: MEDICAL DIET
     Dosage: UNK UKN, QD
     Route: 048
     Dates: start: 20090222

REACTIONS (2)
  - VENTRICULAR EXTRASYSTOLES [None]
  - STRESS [None]
